FAERS Safety Report 25609465 (Version 1)
Quarter: 2025Q3

REPORT INFORMATION
  Report Type: Report from Study
  Country: ZA (occurrence: ZA)
  Receive Date: 20250727
  Receipt Date: 20250727
  Transmission Date: 20251021
  Serious: Yes (Other)
  Sender: ABBVIE
  Company Number: ZA-ABBVIE-6382050

PATIENT
  Sex: Male

DRUGS (1)
  1. OZURDEX [Suspect]
     Active Substance: DEXAMETHASONE
     Indication: Cystoid macular oedema
     Route: 050
     Dates: start: 201208

REACTIONS (1)
  - Blindness unilateral [Unknown]
